FAERS Safety Report 25940101 (Version 2)
Quarter: 2025Q4

REPORT INFORMATION
  Report Type: Spontaneous
  Country: US (occurrence: US)
  Receive Date: 20251020
  Receipt Date: 20251103
  Transmission Date: 20260118
  Serious: No
  Sender: ABBVIE
  Company Number: US-ABBVIE-6502813

PATIENT
  Sex: Female

DRUGS (1)
  1. RESTASIS [Suspect]
     Active Substance: CYCLOSPORINE
     Indication: Dry eye
     Dosage: CYCLOSPORINE 0.05% EYE DROP?ONE FULL APPLICATOR?FREQUENCY TEXT: EVERY 12 HOURS
     Route: 047
     Dates: start: 20250925, end: 20250929

REACTIONS (13)
  - Overdose [Unknown]
  - Pain [Unknown]
  - Product dispensing error [Unknown]
  - Insomnia [Unknown]
  - Secretion discharge [Not Recovered/Not Resolved]
  - Dyspnoea [Unknown]
  - Chest discomfort [Unknown]
  - Foreign body sensation in eyes [Unknown]
  - Muscular weakness [Unknown]
  - Dysphonia [Unknown]
  - Hypersensitivity [Unknown]
  - Neuralgia [Unknown]
  - Hypoacusis [Unknown]

NARRATIVE: CASE EVENT DATE: 20250101
